FAERS Safety Report 15965369 (Version 1)
Quarter: 2019Q1

REPORT INFORMATION
  Report Type: Spontaneous
  Country: US (occurrence: US)
  Receive Date: 20190215
  Receipt Date: 20190215
  Transmission Date: 20190418
  Serious: No
  Sender: FDA-Public Use
  Company Number: US-HORIZON-KRY-0070-2019

PATIENT
  Age: 36 Year
  Sex: Male

DRUGS (1)
  1. KRYSTEXXA [Suspect]
     Active Substance: PEGLOTICASE
     Indication: GOUT
     Dosage: 8 MG/ML INFUSION
     Dates: start: 20181212, end: 20190207

REACTIONS (1)
  - Blood uric acid increased [Unknown]

NARRATIVE: CASE EVENT DATE: 20190123
